FAERS Safety Report 17324002 (Version 1)
Quarter: 2020Q1

REPORT INFORMATION
  Report Type: Spontaneous
  Country: GB (occurrence: GB)
  Receive Date: 20200127
  Receipt Date: 20200127
  Transmission Date: 20200409
  Serious: Yes (Life-Threatening)
  Sender: FDA-Public Use
  Company Number: GB-BAYER-2019-225948

PATIENT
  Age: 19 Year
  Sex: Male
  Weight: 73.2 kg

DRUGS (15)
  1. CIPROXIN [Suspect]
     Active Substance: CIPROFLOXACIN
     Indication: FEBRILE NEUTROPENIA
     Dosage: 400 MG
     Route: 042
     Dates: start: 20191110, end: 20191110
  2. LANSOPRAZOLE. [Concomitant]
     Active Substance: LANSOPRAZOLE
     Dosage: UNK
  3. VINCRISTINE [Concomitant]
     Active Substance: VINCRISTINE
     Dosage: UNK
  4. DOCUSATE [Concomitant]
     Active Substance: DOCUSATE
     Dosage: UNK
  5. IBUPROFEN. [Concomitant]
     Active Substance: IBUPROFEN
     Dosage: UNK
  6. IFOSFAMIDE. [Concomitant]
     Active Substance: IFOSFAMIDE
     Dosage: UNK
  7. TAZOCIN [Concomitant]
     Active Substance: PIPERACILLIN SODIUM\TAZOBACTAM SODIUM
     Dosage: UNK
  8. ACASIA [Concomitant]
     Dosage: UNK
  9. PEGFILGRASTIM [Concomitant]
     Active Substance: PEGFILGRASTIM
     Dosage: UNK
  10. ETOPOSIDE. [Concomitant]
     Active Substance: ETOPOSIDE
     Dosage: UNK
  11. DOXORUBICIN [Concomitant]
     Active Substance: DOXORUBICIN
     Dosage: UNK
  12. ENOXAPARIN [Concomitant]
     Active Substance: ENOXAPARIN
     Dosage: UNK
  13. PARACETAMOL [Concomitant]
     Active Substance: ACETAMINOPHEN
  14. MORPHINE [Concomitant]
     Active Substance: MORPHINE
     Dosage: UNK
  15. PREGABALIN. [Concomitant]
     Active Substance: PREGABALIN
     Dosage: UNK

REACTIONS (1)
  - Anaphylactic reaction [Recovered/Resolved]

NARRATIVE: CASE EVENT DATE: 20191110
